FAERS Safety Report 12968901 (Version 13)
Quarter: 2018Q4

REPORT INFORMATION
  Report Type: Spontaneous
  Country: US (occurrence: US)
  Receive Date: 20161123
  Receipt Date: 20181009
  Transmission Date: 20190204
  Serious: Yes (Life-Threatening, Other)
  Sender: FDA-Public Use
  Company Number: PHEH2016US029964

PATIENT
  Sex: Female

DRUGS (10)
  1. VIVELLE-DOT [Suspect]
     Active Substance: ESTRADIOL
     Dosage: 0.0375 MG AND 0.05 MG PATCHES, UNK
     Route: 062
  2. VITAMIN B12 [Concomitant]
     Active Substance: CYANOCOBALAMIN
     Indication: PRODUCT USED FOR UNKNOWN INDICATION
     Route: 065
  3. ACTIVELLA [Suspect]
     Active Substance: ESTRADIOL\NORETHINDRONE ACETATE
     Indication: PRODUCT USED FOR UNKNOWN INDICATION
     Route: 065
  4. VIVELLE-DOT [Suspect]
     Active Substance: ESTRADIOL
     Dosage: 0.075 MG, UNK
     Route: 062
  5. VIVELLE-DOT [Suspect]
     Active Substance: ESTRADIOL
     Dosage: 0.05 MG, QD
     Route: 062
  6. ESTRADIOL. [Suspect]
     Active Substance: ESTRADIOL
     Indication: PRODUCT USED FOR UNKNOWN INDICATION
     Dosage: UNK
     Route: 062
  7. DIVIGEL [Suspect]
     Active Substance: ESTRADIOL
     Indication: PRODUCT USED FOR UNKNOWN INDICATION
     Dosage: UNK
     Route: 065
  8. VIVELLE-DOT [Suspect]
     Active Substance: ESTRADIOL
     Indication: HORMONE REPLACEMENT THERAPY
     Dosage: 0.05 MG, 2 PATCHES EVERY 3 DAYS
     Route: 062
  9. BENICAR [Concomitant]
     Active Substance: OLMESARTAN MEDOXOMIL
     Indication: PRODUCT USED FOR UNKNOWN INDICATION
     Route: 065
  10. LIDODERM [Concomitant]
     Active Substance: LIDOCAINE
     Indication: PRODUCT USED FOR UNKNOWN INDICATION
     Route: 065

REACTIONS (22)
  - Insomnia [Unknown]
  - Overdose [Unknown]
  - Bladder disorder [Unknown]
  - Eye disorder [Unknown]
  - Product quality issue [Unknown]
  - Product adhesion issue [Unknown]
  - Abdominal pain [Unknown]
  - Drug intolerance [Unknown]
  - Vaginal haemorrhage [Unknown]
  - Confusional state [Unknown]
  - Application site pain [Unknown]
  - Uterine polyp [Unknown]
  - Wrong technique in product usage process [Unknown]
  - Blood oestrogen increased [Unknown]
  - Urticaria [Unknown]
  - Haemorrhage [Unknown]
  - Malaise [Unknown]
  - Breast tenderness [Unknown]
  - Hormone level abnormal [Unknown]
  - Feeling abnormal [Unknown]
  - Breast atrophy [Unknown]
  - Drug ineffective [Unknown]
